FAERS Safety Report 6385651-X (Version None)
Quarter: 2009Q4

REPORT INFORMATION
  Report Type: 
  Country: None (occurrence: None)
  Receive Date: 20091002
  Receipt Date: 20081022
  Transmission Date: 20100525
  Serious: No
  Sender: FDA-Public Use
  Company Number: US-ASTRAZENECA-2008UW23605

PATIENT
  Age: 51 Year
  Sex: Female
  Weight: 61.2 kg

DRUGS (3)
  1. ARIMIDEX [Suspect]
     Indication: BREAST CANCER
     Route: 048
  2. LUPRON [Concomitant]
  3. SYNTHROID [Concomitant]

REACTIONS (2)
  - HOT FLUSH [None]
  - MENOPAUSAL SYMPTOMS [None]
